FAERS Safety Report 4317143-3 (Version None)
Quarter: 2004Q1

REPORT INFORMATION
  Report Type: 
  Country: None (occurrence: None)
  Receive Date: 20040312
  Receipt Date: 20040227
  Transmission Date: 20041129
  Serious: Yes (Hospitalization, Other)
  Sender: FDA-Public Use
  Company Number: 2004JP000284

PATIENT
  Age: 32 Year
  Sex: Male
  Weight: 68 kg

DRUGS (10)
  1. PROGRAF [Suspect]
     Indication: BONE MARROW TRANSPLANT
     Dosage: 2.50 MG, INTRAVENOUS
     Route: 042
     Dates: start: 20040119, end: 20040214
  2. MAXIPIME [Concomitant]
  3. GRAN (FILGRASTIM) [Concomitant]
  4. LEVOFLOXACIN [Concomitant]
  5. URSO [Concomitant]
  6. ZOVIRAX [Concomitant]
  7. FAMOTIDINE [Concomitant]
  8. DIFLUCAN [Concomitant]
  9. ENDOXAN (CYCKLOPHOSPHAMIDE) [Concomitant]
  10. METHOTREXATE [Concomitant]

REACTIONS (2)
  - CONVULSION [None]
  - ENCEPHALOPATHY [None]
